FAERS Safety Report 4615312-6 (Version None)
Quarter: 2005Q1

REPORT INFORMATION
  Report Type: 
  Country: None (occurrence: None)
  Receive Date: 20050317
  Receipt Date: 20050302
  Transmission Date: 20050727
  Serious: Yes (Other)
  Sender: FDA-Public Use
  Company Number: FR-2004-027454

PATIENT
  Age: 54 Year
  Sex: Female
  Weight: 58 kg

DRUGS (1)
  1. BETAFERON (INTERFERON BETA - 1B) INJECTION, 250UG [Suspect]
     Indication: MULTIPLE SCLEROSIS
     Dosage: 8 MIU, EVERY 2D, SUBCUTANEOUS
     Route: 058
     Dates: start: 20021011, end: 20040618

REACTIONS (6)
  - EPILEPSY [None]
  - FALL [None]
  - GAIT DISTURBANCE [None]
  - MENINGISM [None]
  - TRAUMATIC BRAIN INJURY [None]
  - VERTIGO LABYRINTHINE [None]
